FAERS Safety Report 6077617-4 (Version None)
Quarter: 2009Q1

REPORT INFORMATION
  Report Type: 
  Country: None (occurrence: None)
  Receive Date: 20090213
  Receipt Date: 20090204
  Transmission Date: 20090719
  Serious: Yes (Hospitalization)
  Sender: FDA-Public Use
  Company Number: JP-AMGEN-US315107

PATIENT
  Sex: Female
  Weight: 35 kg

DRUGS (19)
  1. ENBREL [Suspect]
     Indication: RHEUMATOID ARTHRITIS
     Dosage: PRE-FILLED SYRINGE 25 MG TWICE WEEKLY
     Route: 058
     Dates: start: 20080424, end: 20080807
  2. METHOTREXATE [Suspect]
     Indication: RHEUMATOID ARTHRITIS
     Route: 048
     Dates: start: 20060617, end: 20060817
  3. METHOTREXATE [Suspect]
     Route: 048
     Dates: start: 20060817, end: 20060914
  4. METHOTREXATE [Suspect]
     Route: 048
     Dates: start: 20060914, end: 20070524
  5. METHOTREXATE [Suspect]
     Route: 048
     Dates: start: 20070524, end: 20070719
  6. METHOTREXATE [Suspect]
     Route: 048
     Dates: start: 20070719
  7. PREDNISOLONE [Concomitant]
     Indication: RHEUMATOID ARTHRITIS
     Route: 048
     Dates: start: 20070201, end: 20080626
  8. TAKEPRON [Concomitant]
     Indication: REFLUX OESOPHAGITIS
     Route: 048
  9. MUCOSTA [Concomitant]
     Indication: GASTRITIS
     Route: 048
  10. ZOLPIDEM TARTRATE [Concomitant]
     Indication: INSOMNIA
     Route: 048
  11. BONALON [Concomitant]
     Indication: OSTEOPOROSIS
     Route: 048
  12. POLARAMINE [Concomitant]
     Indication: URTICARIA
     Route: 048
  13. CRESTOR [Concomitant]
     Indication: HYPERLIPIDAEMIA
     Route: 048
  14. TOLEDOMIN [Concomitant]
     Indication: DEPRESSION
     Route: 048
  15. TALION [Concomitant]
     Indication: URTICARIA
     Route: 048
  16. ASPARTATE CALCIUM [Concomitant]
     Indication: OSTEOPOROSIS
     Route: 048
  17. ONE-ALPHA [Concomitant]
     Indication: OSTEOPOROSIS
     Route: 048
  18. RIBOFLAVIN TETRABUTYRATE [Concomitant]
     Route: 065
  19. CASANTHRANOL [Concomitant]
     Route: 065

REACTIONS (2)
  - MALIGNANT PLEURAL EFFUSION [None]
  - PLEURAL EFFUSION [None]
